FAERS Safety Report 15075664 (Version 1)
Quarter: 2018Q2

REPORT INFORMATION
  Report Type: Spontaneous
  Country: US (occurrence: US)
  Receive Date: 20180627
  Receipt Date: 20180627
  Transmission Date: 20180711
  Serious: No
  Sender: FDA-Public Use
  Company Number: US-SA-2018SA125875

PATIENT
  Age: 69 Year
  Sex: Male
  Weight: 67.57 kg

DRUGS (4)
  1. HUMALOG [Concomitant]
     Active Substance: INSULIN LISPRO
     Dosage: UNK UNK,UNK
     Route: 065
  2. LANTUS [Suspect]
     Active Substance: INSULIN GLARGINE
     Dosage: 9 IU, IN THE EVENING
     Route: 058
     Dates: start: 201711
  3. LANTUS [Suspect]
     Active Substance: INSULIN GLARGINE
     Dosage: 11 IU, IN MORNING
     Route: 058
     Dates: start: 201711
  4. LANTUS [Suspect]
     Active Substance: INSULIN GLARGINE
     Indication: TYPE 1 DIABETES MELLITUS
     Dosage: 20 IU,BID
     Route: 058
     Dates: start: 2008

REACTIONS (4)
  - Drug ineffective [Unknown]
  - Product use issue [Unknown]
  - Intentional product use issue [Unknown]
  - Blood glucose increased [Unknown]

NARRATIVE: CASE EVENT DATE: 20180319
